FAERS Safety Report 9514720 (Version 2)
Quarter: 2013Q4

REPORT INFORMATION
  Report Type: Spontaneous
  Country: US (occurrence: US)
  Receive Date: 20130911
  Receipt Date: 20131017
  Transmission Date: 20140711
  Serious: No
  Sender: FDA-Public Use
  Company Number: US-009507513-1309USA004278

PATIENT
  Age: 83 Year
  Sex: Female

DRUGS (2)
  1. ASMANEX TWISTHALER [Suspect]
     Dosage: ONE PUFF DAILY, ASMANEX AER_EA 220MCG 1 STANDARD DOSE OF 120
     Route: 048
  2. ASMANEX TWISTHALER [Suspect]
     Dosage: ONE PUFF TWICE DAILY
     Route: 048

REACTIONS (4)
  - Drug ineffective [Unknown]
  - Drug dose omission [Unknown]
  - Product packaging quantity issue [Unknown]
  - Product quality issue [Unknown]
